FAERS Safety Report 12261438 (Version 1)
Quarter: 2016Q2

REPORT INFORMATION
  Report Type: Spontaneous
  Country: US (occurrence: None)
  Receive Date: 20160412
  Receipt Date: 20160412
  Transmission Date: 20160815
  Serious: Yes (Life-Threatening, Hospitalization)
  Sender: FDA-Public Use
  Company Number: None

PATIENT
  Age: 58 Year
  Sex: Male
  Weight: 134.4 kg

DRUGS (4)
  1. CEFTAROLINE, 600MG [Suspect]
     Active Substance: CEFTAROLINE
     Indication: SEPTIC ARTHRITIS STREPTOCOCCAL
     Route: 042
     Dates: start: 20160307, end: 20160401
  2. DAPTOMYCIN. [Concomitant]
     Active Substance: DAPTOMYCIN
  3. FILGRASTIM [Concomitant]
     Active Substance: FILGRASTIM
  4. VANCOMYCIN [Concomitant]
     Active Substance: VANCOMYCIN

REACTIONS (2)
  - Neutropenia [None]
  - Agranulocytosis [None]

NARRATIVE: CASE EVENT DATE: 20160401
